FAERS Safety Report 4600936-2 (Version None)
Quarter: 2005Q1

REPORT INFORMATION
  Report Type: 
  Country: None (occurrence: None)
  Receive Date: 20050127
  Receipt Date: 20041025
  Transmission Date: 20050727
  Serious: No
  Sender: FDA-Public Use
  Company Number: USA041082170

PATIENT
  Age: 14 Year
  Sex: Male
  Weight: 48 kg

DRUGS (1)
  1. STRATTERA [Suspect]
     Indication: ABNORMAL BEHAVIOUR
     Dosage: 25 MG DAY
     Dates: start: 20041023

REACTIONS (2)
  - FEELING ABNORMAL [None]
  - SOMNOLENCE [None]
